FAERS Safety Report 13713312 (Version 4)
Quarter: 2018Q1

REPORT INFORMATION
  Report Type: Spontaneous
  Country: BR (occurrence: BR)
  Receive Date: 20170704
  Receipt Date: 20180227
  Transmission Date: 20180508
  Serious: Yes (Hospitalization)
  Sender: FDA-Public Use
  Company Number: BR-AMGEN-BRASP2016065317

PATIENT
  Age: 57 Year
  Sex: Female
  Weight: 57 kg

DRUGS (6)
  1. DIPYRONE [Concomitant]
     Active Substance: DIPYRONE
     Indication: HEADACHE
     Dosage: UNK
  2. PROLIA [Concomitant]
     Active Substance: DENOSUMAB
     Indication: BONE DECALCIFICATION
     Dosage: EVERY 6 MONTHS
     Route: 065
     Dates: start: 201507, end: 201702
  3. ENBREL [Suspect]
     Active Substance: ETANERCEPT
     Dosage: UNK
     Route: 065
     Dates: start: 20160120
  4. ENBREL [Suspect]
     Active Substance: ETANERCEPT
     Indication: ANKYLOSING SPONDYLITIS
     Dosage: 50 MG, QWK
     Route: 058
     Dates: start: 20150901
  5. NIMESULIDE [Concomitant]
     Active Substance: NIMESULIDE
     Indication: PAIN
     Dosage: UNK
  6. CALDE [Concomitant]
     Active Substance: CALCIUM CARBONATE\CHOLECALCIFEROL
     Indication: BONE DECALCIFICATION
     Dosage: UNK
     Dates: start: 201507

REACTIONS (24)
  - Nasal disorder [Recovered/Resolved]
  - Oropharyngeal pain [Recovered/Resolved]
  - Drug effect incomplete [Recovered/Resolved]
  - Gingival pain [Recovered/Resolved]
  - Periodontal disease [Recovered/Resolved]
  - Nuchal rigidity [Recovered/Resolved]
  - Pain in extremity [Recovered/Resolved]
  - Ear pain [Recovered/Resolved]
  - Malaise [Recovered/Resolved]
  - Tooth disorder [Recovered/Resolved]
  - Neck pain [Recovered/Resolved]
  - Decreased immune responsiveness [Recovered/Resolved]
  - Condition aggravated [Recovered/Resolved]
  - Muscle spasms [Recovered/Resolved]
  - Influenza [Recovered/Resolved]
  - Movement disorder [Recovered/Resolved]
  - Periodontal inflammation [Recovered/Resolved]
  - Arthropathy [Recovered/Resolved]
  - Urine calcium decreased [Not Recovered/Not Resolved]
  - Arthralgia [Recovered/Resolved]
  - Drug dose omission [Recovered/Resolved]
  - Chikungunya virus infection [Recovered/Resolved]
  - Headache [Recovered/Resolved]
  - Fungal infection [Recovered/Resolved]

NARRATIVE: CASE EVENT DATE: 2015
